FAERS Safety Report 5256495-7 (Version None)
Quarter: 2007Q1

REPORT INFORMATION
  Report Type: 
  Country: None (occurrence: None)
  Receive Date: 20070306
  Receipt Date: 20070227
  Transmission Date: 20070707
  Serious: Yes (Other)
  Sender: FDA-Public Use
  Company Number: NL-GLAXOSMITHKLINE-B0460742A

PATIENT
  Age: 43 Year
  Sex: Male

DRUGS (1)
  1. MALARONE [Suspect]
     Indication: PROPHYLAXIS
     Route: 048
     Dates: start: 20061201, end: 20061201

REACTIONS (4)
  - COUGH [None]
  - DIARRHOEA [None]
  - GASTROENTERITIS [None]
  - PYREXIA [None]
